FAERS Safety Report 15452006 (Version 1)
Quarter: 2018Q4

REPORT INFORMATION
  Report Type: Spontaneous
  Country: CA (occurrence: CA)
  Receive Date: 20181001
  Receipt Date: 20181001
  Transmission Date: 20190204
  Serious: Yes (Other)
  Sender: FDA-Public Use
  Company Number: CA-PFIZER INC-2018390130

PATIENT
  Age: 9 Month
  Sex: Male
  Weight: 7 kg

DRUGS (1)
  1. ADVIL PEDIATRIC DROPS [Suspect]
     Active Substance: IBUPROFEN
     Indication: PYREXIA
     Dosage: 1 ML, 3X/DAY
     Route: 048

REACTIONS (2)
  - Vomiting [Recovered/Resolved]
  - Eating disorder [Recovered/Resolved]
